FAERS Safety Report 21687924 (Version 1)
Quarter: 2022Q4

REPORT INFORMATION
  Report Type: Spontaneous
  Country: US (occurrence: US)
  Receive Date: 20221206
  Receipt Date: 20221206
  Transmission Date: 20230112
  Serious: Yes (Other)
  Sender: FDA-Public Use
  Company Number: US-MYLANLABS-2022M1136170

PATIENT
  Age: 61 Year
  Sex: Male

DRUGS (9)
  1. CISPLATIN [Suspect]
     Active Substance: CISPLATIN
     Indication: Small cell lung cancer metastatic
     Dosage: UNK, CYCLE (RECEIVED TWO CYCLES)
     Route: 065
     Dates: start: 202103
  2. ETOPOSIDE [Suspect]
     Active Substance: ETOPOSIDE
     Indication: Small cell lung cancer metastatic
     Dosage: UNK, CYCLE (RECEIVED TWO CYCLES)
     Route: 065
     Dates: start: 202103
  3. TOLVAPTAN [Suspect]
     Active Substance: TOLVAPTAN
     Indication: Inappropriate antidiuretic hormone secretion
     Dosage: 15 MILLIGRAM, QD
     Route: 065
     Dates: start: 202105
  4. TOLVAPTAN [Suspect]
     Active Substance: TOLVAPTAN
     Dosage: 30 MILLIGRAM, QD
     Route: 065
     Dates: start: 202112
  5. TOLVAPTAN [Suspect]
     Active Substance: TOLVAPTAN
     Dosage: 45 MILLIGRAM, QD
     Route: 065
     Dates: start: 202201
  6. TOLVAPTAN [Suspect]
     Active Substance: TOLVAPTAN
     Dosage: 30 MILLIGRAM, QD (REDUCED DOSE)
     Route: 065
     Dates: start: 202202
  7. LASIX [Concomitant]
     Active Substance: FUROSEMIDE
     Indication: Inappropriate antidiuretic hormone secretion
     Dosage: 20 MILLIGRAM, BID
     Route: 065
     Dates: start: 202104
  8. SODIUM CHLORIDE [Concomitant]
     Active Substance: SODIUM CHLORIDE
     Indication: Inappropriate antidiuretic hormone secretion
     Dosage: UNK
     Route: 065
     Dates: start: 202105
  9. SODIUM CHLORIDE [Concomitant]
     Active Substance: SODIUM CHLORIDE
     Dosage: UNK
     Route: 065
     Dates: start: 202111

REACTIONS (1)
  - Drug ineffective [Unknown]
